FAERS Safety Report 4730555-9 (Version None)
Quarter: 2005Q3

REPORT INFORMATION
  Report Type: 
  Country: None (occurrence: None)
  Receive Date: 20050725
  Receipt Date: 20050217
  Transmission Date: 20060218
  Serious: No
  Sender: FDA-Public Use
  Company Number: USA050291028

PATIENT
  Age: 47 Year
  Sex: Female

DRUGS (1)
  1. STRATTERA [Suspect]
     Dosage: 80 MG/1 DAY
     Dates: start: 20050203

REACTIONS (6)
  - ANXIETY [None]
  - CONSTIPATION [None]
  - DIZZINESS [None]
  - DRUG INEFFECTIVE [None]
  - FATIGUE [None]
  - NERVOUSNESS [None]
